FAERS Safety Report 18490305 (Version 1)
Quarter: 2020Q4

REPORT INFORMATION
  Report Type: Spontaneous
  Country: NL (occurrence: FR)
  Receive Date: 20201111
  Receipt Date: 20201111
  Transmission Date: 20210114
  Serious: Yes (Death, Hospitalization)
  Sender: FDA-Public Use
  Company Number: FR-FRESENIUS KABI-FK202011785

PATIENT
  Age: 49 Year
  Sex: Male
  Weight: 76 kg

DRUGS (6)
  1. PACLITAXEL (MANUFACTURER UNKNOWN) [Suspect]
     Active Substance: PACLITAXEL
     Indication: TESTIS CANCER
     Route: 042
     Dates: start: 20200901, end: 20200901
  2. CISPLATIN. [Suspect]
     Active Substance: CISPLATIN
     Route: 042
     Dates: start: 20200901, end: 20200905
  3. BLEOMYCIN [Suspect]
     Active Substance: BLEOMYCIN SULFATE
     Indication: TESTIS CANCER
     Route: 042
     Dates: start: 20200901, end: 20200915
  4. OXALIPLATIN (MANUFACTURER UNKNOWN) [Suspect]
     Active Substance: OXALIPLATIN
     Indication: TESTIS CANCER
     Route: 042
     Dates: start: 20200910, end: 20200910
  5. ETOPOSIDE. [Suspect]
     Active Substance: ETOPOSIDE
     Indication: TESTIS CANCER
     Route: 042
     Dates: start: 20200901, end: 20200905
  6. CISPLATIN. [Suspect]
     Active Substance: CISPLATIN
     Indication: TESTIS CANCER
     Route: 042
     Dates: start: 20200923, end: 20200923

REACTIONS (3)
  - Respiratory failure [Fatal]
  - Acute respiratory distress syndrome [Fatal]
  - Lung disorder [Fatal]

NARRATIVE: CASE EVENT DATE: 20201005
